FAERS Safety Report 4743145-9 (Version None)
Quarter: 2005Q3

REPORT INFORMATION
  Report Type: 
  Country: None (occurrence: None)
  Receive Date: 20050811
  Receipt Date: 20050801
  Transmission Date: 20060218
  Serious: Yes (Death)
  Sender: FDA-Public Use
  Company Number: JP-MERCK-0508USA01531

PATIENT
  Age: 88 Year
  Sex: Female

DRUGS (2)
  1. PEPCID [Suspect]
     Route: 048
     Dates: start: 20020401
  2. PEPCID [Suspect]
     Route: 048

REACTIONS (1)
  - DEATH [None]
